FAERS Safety Report 5423856-2 (Version None)
Quarter: 2007Q3

REPORT INFORMATION
  Report Type: 
  Country: None (occurrence: None)
  Receive Date: 20070823
  Receipt Date: 20070815
  Transmission Date: 20080115
  Serious: Yes (Hospitalization)
  Sender: FDA-Public Use
  Company Number: B0484144A

PATIENT

DRUGS (1)
  1. PANADOL [Suspect]
     Dosage: 500MG UNKNOWN
     Route: 042
     Dates: start: 20070801

REACTIONS (4)
  - DRUG ADMINISTRATION ERROR [None]
  - INCORRECT ROUTE OF DRUG ADMINISTRATION [None]
  - INJECTION [None]
  - PNEUMONIA [None]
